FAERS Safety Report 4764526-3 (Version None)
Quarter: 2005Q3

REPORT INFORMATION
  Report Type: 
  Country: None (occurrence: None)
  Receive Date: 20050909
  Receipt Date: 20050907
  Transmission Date: 20060218
  Serious: Yes (Death, Hospitalization)
  Sender: FDA-Public Use
  Company Number: GB-BRISTOL-MYERS SQUIBB COMPANY-13102561

PATIENT
  Age: 68 Year
  Sex: Female
  Weight: 168 kg

DRUGS (9)
  1. CARBOPLATIN [Suspect]
     Indication: OVARIAN CANCER
     Route: 042
     Dates: start: 20050621, end: 20050621
  2. GEMCITABINE HCL [Suspect]
     Indication: OVARIAN CANCER
     Route: 042
     Dates: start: 20050705, end: 20050705
  3. OMEPRAZOLE [Concomitant]
     Route: 048
     Dates: start: 20050519
  4. MAXOLON [Concomitant]
     Route: 048
     Dates: start: 20050519
  5. THYROXINE [Concomitant]
     Route: 048
     Dates: start: 20050519
  6. ORAMORPH SR [Concomitant]
     Dates: start: 20050519
  7. CO-DANTHRAMER [Concomitant]
     Route: 048
     Dates: start: 20050519
  8. MORPHINE SULFATE [Concomitant]
     Route: 048
     Dates: start: 20050621
  9. IBUPROFEN [Concomitant]
     Route: 048
     Dates: end: 20050722

REACTIONS (3)
  - BACK PAIN [None]
  - BLOOD CREATININE INCREASED [None]
  - VOMITING [None]
